FAERS Safety Report 7559660-9 (Version None)
Quarter: 2011Q2

REPORT INFORMATION
  Report Type: 
  Country: None (occurrence: None)
  Receive Date: 20110621
  Receipt Date: 20110609
  Transmission Date: 20111010
  Serious: Yes (Hospitalization, Other)
  Sender: FDA-Public Use
  Company Number: SK-AMGEN-SVKSP2011029808

PATIENT
  Age: 57 Year
  Sex: Female

DRUGS (6)
  1. SIOFOR [Concomitant]
     Dosage: 500 MG, BID
  2. CALTRATE PLUS                      /01438001/ [Concomitant]
  3. HUMALOG [Concomitant]
     Dosage: 20018 UNK, UNK
     Route: 058
  4. LEVOTHYROXINE SODIUM [Concomitant]
     Dosage: 125 MG, QD
  5. PROLIA [Suspect]
     Indication: OSTEOPOROSIS POSTMENOPAUSAL
  6. BISOPROLOL FUMARATE AND HYDROCHLOROTHIAZIDE [Concomitant]

REACTIONS (3)
  - RASH GENERALISED [None]
  - ECZEMA [None]
  - LICHENOID KERATOSIS [None]
